FAERS Safety Report 4870531-9 (Version None)
Quarter: 2005Q4

REPORT INFORMATION
  Report Type: 
  Country: None (occurrence: None)
  Receive Date: 20051228
  Receipt Date: 20051220
  Transmission Date: 20060501
  Serious: No
  Sender: FDA-Public Use
  Company Number: TPA2005A01504

PATIENT
  Age: 27 Year
  Sex: Female
  Weight: 46.2669 kg

DRUGS (6)
  1. ROZEREM [Suspect]
     Indication: INSOMNIA
     Dosage: 8 MG, PER ORAL
     Route: 048
     Dates: start: 20051111, end: 20051111
  2. TUSSIONEX [Concomitant]
  3. PREDNISONE [Concomitant]
  4. ALBUTERAL (SALBUTAMOL) [Concomitant]
  5. NUVARING [Concomitant]
  6. BENADRYL [Concomitant]

REACTIONS (4)
  - AMNESIA [None]
  - ANAPHYLACTIC REACTION [None]
  - APHASIA [None]
  - DYSARTHRIA [None]
